FAERS Safety Report 8157800-4 (Version None)
Quarter: 2012Q1

REPORT INFORMATION
  Report Type: 
  Country: None (occurrence: None)
  Receive Date: 20120222
  Receipt Date: 20110630
  Transmission Date: 20120608
  Serious: Yes (Other)
  Sender: FDA-Public Use
  Company Number: US-ROCHE-787963

PATIENT
  Sex: Male
  Weight: 83.9 kg

DRUGS (4)
  1. AVASTIN [Suspect]
     Indication: AGE-RELATED MACULAR DEGENERATION
     Route: 042
  2. LISINOPRIL [Concomitant]
  3. LUTEIN [Concomitant]
     Dosage: REPORTED AS: LUTEIN SUPPLEMENT.
  4. VITAMIN D [Concomitant]

REACTIONS (2)
  - BLINDNESS [None]
  - GAIT DISTURBANCE [None]
